FAERS Safety Report 18769137 (Version 3)
Quarter: 2021Q1

REPORT INFORMATION
  Report Type: Spontaneous
  Country: JP (occurrence: JP)
  Receive Date: 20210121
  Receipt Date: 20210212
  Transmission Date: 20210419
  Serious: Yes (Hospitalization, Other)
  Sender: FDA-Public Use
  Company Number: NVSJ2021JP000976

PATIENT
  Age: 2 Year
  Sex: Female
  Weight: 9.41 kg

DRUGS (7)
  1. SUCROSE [Concomitant]
     Active Substance: SUCROSE
     Indication: PRODUCT USED FOR UNKNOWN INDICATION
     Dosage: 5 ML, TID
     Route: 048
  2. FOSRENOL [Concomitant]
     Active Substance: LANTHANUM CARBONATE
     Indication: PRODUCT USED FOR UNKNOWN INDICATION
     Dosage: 1 TABLET WAS DISSOLVED IN 5 ML OF HOT WATER, AND 2.5 ML WAS ORALLY ADMINISTERED AT 125 MG/DOSE, TID
     Route: 048
  3. SODIUM BICARBONATE. [Concomitant]
     Active Substance: SODIUM BICARBONATE
     Indication: PRODUCT USED FOR UNKNOWN INDICATION
     Dosage: 1 G, TID
     Route: 065
  4. PRANLUKAST [Concomitant]
     Active Substance: PRANLUKAST
     Indication: PRODUCT USED FOR UNKNOWN INDICATION
     Dosage: 18 MG, BID
     Route: 065
  5. SODIUM CHLORIDE. [Concomitant]
     Active Substance: SODIUM CHLORIDE
     Indication: PRODUCT USED FOR UNKNOWN INDICATION
     Dosage: 2G (IN 3 DIVIDED DOSES), TID
     Route: 065
  6. PRAVASTATIN SODIUM. [Concomitant]
     Active Substance: PRAVASTATIN SODIUM
     Indication: PRODUCT USED FOR UNKNOWN INDICATION
     Dosage: 1 MG, QD, CRUSHED
     Route: 048
  7. SOMATROPIN BS S.C. INJECTION [Suspect]
     Active Substance: SOMATROPIN
     Indication: SHORT STATURE
     Dosage: 0.2 MG, QW6
     Route: 058
     Dates: start: 20200928, end: 20210107

REACTIONS (4)
  - Nephrotic syndrome [Recovering/Resolving]
  - Seizure [Recovering/Resolving]
  - Oedema [Recovering/Resolving]
  - Seizure [Recovered/Resolved]

NARRATIVE: CASE EVENT DATE: 20201109
